FAERS Safety Report 13338578 (Version 1)
Quarter: 2017Q1

REPORT INFORMATION
  Report Type: Report from Study
  Country: CO (occurrence: CO)
  Receive Date: 20170315
  Receipt Date: 20170315
  Transmission Date: 20170428
  Serious: Yes (Death, Hospitalization, Other)
  Sender: FDA-Public Use
  Company Number: CO-JNJFOC-20161005848

PATIENT
  Age: 82 Year
  Sex: Female

DRUGS (5)
  1. ENALAPRIL [Concomitant]
     Active Substance: ENALAPRIL
     Route: 065
  2. ATORVASTATIN [Concomitant]
     Active Substance: ATORVASTATIN
     Route: 065
  3. METFORMIN [Concomitant]
     Active Substance: METFORMIN HYDROCHLORIDE
     Route: 065
  4. XARELTO [Suspect]
     Active Substance: RIVAROXABAN
     Indication: DEEP VEIN THROMBOSIS
     Route: 048
     Dates: start: 20121204, end: 20160910
  5. INDAPAMIDE. [Concomitant]
     Active Substance: INDAPAMIDE
     Route: 065

REACTIONS (4)
  - Pleural effusion [Fatal]
  - Infarction [Fatal]
  - Blood urine present [Unknown]
  - Bladder mass [Unknown]

NARRATIVE: CASE EVENT DATE: 20160908
